FAERS Safety Report 25796488 (Version 1)
Quarter: 2025Q3

REPORT INFORMATION
  Report Type: Spontaneous
  Country: US (occurrence: US)
  Receive Date: 20250912
  Receipt Date: 20250912
  Transmission Date: 20251020
  Serious: No
  Sender: SANOFI AVENTIS
  Company Number: US-SA-2025SA271581

PATIENT
  Sex: Female
  Weight: 140.61 kg

DRUGS (41)
  1. DUPIXENT [Suspect]
     Active Substance: DUPILUMAB
     Indication: Asthma
     Dosage: 300 MG, QOW
     Route: 058
  2. OXYGEN [Concomitant]
     Active Substance: OXYGEN
  3. IBUPROFEN [Concomitant]
     Active Substance: IBUPROFEN
  4. ERYTHROMYCIN [Concomitant]
     Active Substance: ERYTHROMYCIN
  5. PULMICORT FLEXHALER [Concomitant]
     Active Substance: BUDESONIDE
  6. CARAFATE [Concomitant]
     Active Substance: SUCRALFATE
  7. METOLAZONE [Concomitant]
     Active Substance: METOLAZONE
  8. ALLOPURINOL [Concomitant]
     Active Substance: ALLOPURINOL
  9. AMLODIPINE BESYLATE [Concomitant]
     Active Substance: AMLODIPINE BESYLATE
  10. IPRATROPIUM BROMIDE [Concomitant]
     Active Substance: IPRATROPIUM BROMIDE
  11. METHOCARBAMOL [Concomitant]
     Active Substance: METHOCARBAMOL
  12. FARXIGA [Concomitant]
     Active Substance: DAPAGLIFLOZIN PROPANEDIOL
  13. LORAZEPAM [Concomitant]
     Active Substance: LORAZEPAM
  14. MAGNESIUM [Concomitant]
     Active Substance: MAGNESIUM
  15. METOPROLOL TARTRATE [Concomitant]
     Active Substance: METOPROLOL TARTRATE
  16. POTASSIUM CHLORIDE [Concomitant]
     Active Substance: POTASSIUM CHLORIDE
  17. SPIRONOLACTONE [Concomitant]
     Active Substance: SPIRONOLACTONE
  18. TORSEMIDE [Concomitant]
     Active Substance: TORSEMIDE
  19. ALBUTEROL SULFATE [Concomitant]
     Active Substance: ALBUTEROL SULFATE
  20. XYZAL [Concomitant]
     Active Substance: LEVOCETIRIZINE DIHYDROCHLORIDE
  21. TYLENOL EXTRA STRENGTH [Concomitant]
     Active Substance: ACETAMINOPHEN
  22. NITROGLYCERIN [Concomitant]
     Active Substance: NITROGLYCERIN
  23. LIDOCAINE HYDROCHLORIDE [Concomitant]
     Active Substance: LIDOCAINE HYDROCHLORIDE
  24. MIRALAX [Concomitant]
     Active Substance: POLYETHYLENE GLYCOL 3350
  25. FISH OIL [Concomitant]
     Active Substance: FISH OIL
  26. SODIUM CHLORIDE [Concomitant]
     Active Substance: SODIUM CHLORIDE
  27. PROAIR RESPICLICK [Concomitant]
     Active Substance: ALBUTEROL SULFATE
  28. TRAMADOL HCL [Concomitant]
     Active Substance: TRAMADOL HYDROCHLORIDE
  29. ONDANSETRON HYDROCHLORIDE [Concomitant]
     Active Substance: ONDANSETRON HYDROCHLORIDE
  30. MONTELUKAST SODIUM [Concomitant]
     Active Substance: MONTELUKAST SODIUM
  31. MUCINEX [Concomitant]
     Active Substance: GUAIFENESIN
  32. NYSTATIN [Concomitant]
     Active Substance: NYSTATIN
  33. GABAPENTIN [Concomitant]
     Active Substance: GABAPENTIN
  34. CRESTOR [Concomitant]
     Active Substance: ROSUVASTATIN CALCIUM
  35. ALBUTEROL SULFATE [Concomitant]
     Active Substance: ALBUTEROL SULFATE
  36. PLAVIX [Concomitant]
     Active Substance: CLOPIDOGREL BISULFATE
  37. VITAMIN D3 [Concomitant]
     Active Substance: CHOLECALCIFEROL
  38. FERROUS SULFATE [Concomitant]
     Active Substance: FERROUS SULFATE
  39. ROPINIROLE HYDROCHLORIDE [Concomitant]
     Active Substance: ROPINIROLE HYDROCHLORIDE
  40. FAMOTIDINE [Concomitant]
     Active Substance: FAMOTIDINE
  41. LANSOPRAZOLE [Concomitant]
     Active Substance: LANSOPRAZOLE

REACTIONS (2)
  - Asthma [Not Recovered/Not Resolved]
  - Middle insomnia [Not Recovered/Not Resolved]
